FAERS Safety Report 7488953-9 (Version None)
Quarter: 2011Q2

REPORT INFORMATION
  Report Type: 
  Country: None (occurrence: None)
  Receive Date: 20110518
  Receipt Date: 20110510
  Transmission Date: 20111010
  Serious: Yes (Hospitalization)
  Sender: FDA-Public Use
  Company Number: DE-CEPHALON-2011002367

PATIENT
  Sex: Male
  Weight: 118 kg

DRUGS (2)
  1. BENDAMUSTINE HCL [Suspect]
     Indication: MULTIPLE MYELOMA
     Route: 042
  2. BORTEZOMIB [Concomitant]

REACTIONS (2)
  - PYREXIA [None]
  - MENINGITIS [None]
